FAERS Safety Report 19908753 (Version 1)
Quarter: 2021Q4

REPORT INFORMATION
  Report Type: Report from Study
  Country: US (occurrence: US)
  Receive Date: 20211001
  Receipt Date: 20211001
  Transmission Date: 20220303
  Serious: Yes (Hospitalization, Other)
  Sender: FDA-Public Use
  Company Number: US-UCBSA-2021045163

PATIENT
  Sex: Female

DRUGS (7)
  1. CERTOLIZUMAB PEGOL [Suspect]
     Active Substance: CERTOLIZUMAB PEGOL
     Indication: Product used for unknown indication
     Dosage: UNK
     Dates: end: 20180322
  2. CERTOLIZUMAB PEGOL [Suspect]
     Active Substance: CERTOLIZUMAB PEGOL
     Dosage: UNKNOWN DOSE
     Dates: start: 2018
  3. BENZTROPINE [Concomitant]
     Active Substance: BENZTROPINE
     Indication: Product used for unknown indication
     Dosage: 0.5 MILLIGRAM, 2X/DAY (BID)
  4. DEPAKOTE ER [Concomitant]
     Active Substance: DIVALPROEX SODIUM
     Dosage: 250 MILLIGRAM, ONCE DAILY (QD)
     Dates: start: 20180123
  5. FERRALET [FERROUS GLUCONATE] [Concomitant]
     Indication: Product used for unknown indication
     Dosage: 90?1?12?50 MG?MG?MCG?MG TABLET
  6. SULFASALAZINE [Concomitant]
     Active Substance: SULFASALAZINE
     Indication: Product used for unknown indication
     Dosage: 500 MILLIGRAM, 2X/DAY (BID)X 30DAYS
     Route: 048
     Dates: start: 20180222, end: 20181206
  7. VITAMIN D2 [Concomitant]
     Active Substance: ERGOCALCIFEROL
     Indication: Product used for unknown indication
     Dosage: 50,000 UNIT CAPSULE X 84 DAYS
     Dates: start: 20170320

REACTIONS (5)
  - Chest pain [Unknown]
  - Psoriatic arthropathy [Unknown]
  - Depression [Unknown]
  - Psoriasis [Recovering/Resolving]
  - Polyarthritis [Unknown]
